FAERS Safety Report 7654627-4 (Version None)
Quarter: 2011Q3

REPORT INFORMATION
  Report Type: 
  Country: None (occurrence: None)
  Receive Date: 20110803
  Receipt Date: 20110721
  Transmission Date: 20111222
  Serious: Yes (Life-Threatening)
  Sender: FDA-Public Use
  Company Number: FR-MYLANLABS-2011S1015556

PATIENT
  Age: 83 Year
  Sex: Female

DRUGS (5)
  1. FLUINDIONE [Concomitant]
     Route: 065
  2. CITALOPRAM HYDROBROMIDE [Suspect]
     Dosage: 20MG
     Route: 065
  3. LOSARTAN POTASSIUM [Concomitant]
     Dosage: 50MG
     Route: 065
  4. LERCANIDIPINE [Concomitant]
     Dosage: 10MG
     Route: 065
  5. AMIODARONE HCL [Interacting]
     Dosage: 200MG
     Route: 065

REACTIONS (4)
  - TORSADE DE POINTES [None]
  - DRUG INTERACTION [None]
  - DIZZINESS [None]
  - PALPITATIONS [None]
